FAERS Safety Report 18394062 (Version 1)
Quarter: 2020Q4

REPORT INFORMATION
  Report Type: Spontaneous
  Country: US (occurrence: US)
  Receive Date: 20201016
  Receipt Date: 20201016
  Transmission Date: 20210114
  Serious: Yes (Hospitalization, Other)
  Sender: FDA-Public Use
  Company Number: US-BAYER-2020-223051

PATIENT
  Age: 61 Year
  Sex: Female
  Weight: 46.26 kg

DRUGS (6)
  1. NIFEDIPINE. [Concomitant]
     Active Substance: NIFEDIPINE
     Dosage: UNK
  2. ADEMPAS [Suspect]
     Active Substance: RIOCIGUAT
     Indication: PULMONARY ARTERIAL HYPERTENSION
     Dosage: 1 MG
  3. ADEMPAS [Suspect]
     Active Substance: RIOCIGUAT
     Indication: PULMONARY ARTERIAL HYPERTENSION
     Dosage: 0.5 UNK
  4. OPSUMIT [Suspect]
     Active Substance: MACITENTAN
     Indication: PULMONARY ARTERIAL HYPERTENSION
     Dosage: 10 MG, QD
     Route: 048
  5. VELETRI [Suspect]
     Active Substance: EPOPROSTENOL
     Indication: PULMONARY ARTERIAL HYPERTENSION
     Dosage: 72NG/KG/MIN
     Route: 042
  6. TADAFIL [Concomitant]
     Active Substance: TADALAFIL
     Dosage: UNK

REACTIONS (13)
  - Pain in extremity [None]
  - Arthralgia [None]
  - Peripheral swelling [None]
  - Dizziness postural [None]
  - Ascites [Not Recovered/Not Resolved]
  - Spinal pain [None]
  - Nerve compression [Not Recovered/Not Resolved]
  - Dyspnoea [Not Recovered/Not Resolved]
  - Central venous catheterisation [None]
  - Dyspnoea exertional [Not Recovered/Not Resolved]
  - Malaise [None]
  - Fatigue [None]
  - Diarrhoea [Not Recovered/Not Resolved]

NARRATIVE: CASE EVENT DATE: 20200212
